FAERS Safety Report 5797708-2 (Version None)
Quarter: 2008Q3

REPORT INFORMATION
  Report Type: 
  Country: None (occurrence: None)
  Receive Date: 20080702
  Receipt Date: 20080626
  Transmission Date: 20090109
  Serious: Yes (Other)
  Sender: FDA-Public Use
  Company Number: NL-BRISTOL-MYERS SQUIBB COMPANY-14234108

PATIENT
  Age: 73 Year
  Sex: Male

DRUGS (1)
  1. MITOMYCIN [Suspect]
     Dosage: INJECTION

REACTIONS (3)
  - LARGE INTESTINE PERFORATION [None]
  - PERITONEAL EFFUSION [None]
  - PERITONITIS [None]
